FAERS Safety Report 10654406 (Version 1)
Quarter: 2014Q4

REPORT INFORMATION
  Report Type: Spontaneous
  Country: US (occurrence: None)
  Receive Date: 20141212
  Receipt Date: 20141212
  Transmission Date: 20150529
  Serious: Yes (Other)
  Sender: FDA-Public Use
  Company Number: FK201406069

PATIENT
  Sex: Male

DRUGS (6)
  1. VINCRISTINE (VINCRISTINE) (VINCRISTINE) [Suspect]
     Active Substance: VINCRISTINE
     Indication: PRIMARY MEDIASTINAL LARGE B-CELL LYMPHOMA
     Dosage: CYCLICAL
     Route: 015
  2. ETOPOSIDE (MANUFACTURER UNKNOWN) (ETOPOSIDE) (ETOPOSIDE) [Suspect]
     Active Substance: ETOPOSIDE
     Indication: PRIMARY MEDIASTINAL LARGE B-CELL LYMPHOMA
     Dosage: CYCLICAL
     Route: 015
  3. PREDNISONE (PREDNISONE) (PREDNISONE) [Suspect]
     Active Substance: PREDNISONE
     Indication: PRIMARY MEDIASTINAL LARGE B-CELL LYMPHOMA
     Dosage: CYCLICAL
     Route: 015
  4. DOXORUBICIN (MANUFACTURER UNKNOWN) (DOXORUBICIN HYDROCHLORIDE) (DOXORUBICIN HYDROCHLORIDE) [Suspect]
     Active Substance: DOXORUBICIN
     Indication: PRIMARY MEDIASTINAL LARGE B-CELL LYMPHOMA
     Dosage: CYCLICAL
     Route: 015
  5. CYCLOPHOSPHAMIDE (MANUFACTURER UNKNOWN) (CYCLOPHOSPHAMIDE) (CYCLOPHOSPHADMIDE) [Suspect]
     Active Substance: CYCLOPHOSPHAMIDE
     Indication: PRIMARY MEDIASTINAL LARGE B-CELL LYMPHOMA
     Dosage: CYCLICAL
     Route: 015
  6. RITUXIMAB (RITUXIMAB) (RITUXIMAB) [Suspect]
     Active Substance: RITUXIMAB
     Indication: PRIMARY MEDIASTINAL LARGE B-CELL LYMPHOMA
     Dosage: CYCLICAL
     Route: 015

REACTIONS (4)
  - Congenital pneumonia [None]
  - Premature baby [None]
  - Neonatal respiratory distress syndrome [None]
  - Exposure during pregnancy [None]
